FAERS Safety Report 11352990 (Version 1)
Quarter: 2015Q3

REPORT INFORMATION
  Report Type: Spontaneous
  Country: US (occurrence: US)
  Receive Date: 20150807
  Receipt Date: 20150807
  Transmission Date: 20151125
  Serious: No
  Sender: FDA-Public Use
  Company Number: US-JNJFOC-20150620738

PATIENT
  Age: 27 Year
  Sex: Female
  Weight: 49.9 kg

DRUGS (3)
  1. CONTRACEPTIVE [Concomitant]
     Active Substance: UNSPECIFIED INGREDIENT
     Indication: CONTRACEPTION
     Dosage: SINCE MANY YEARS
     Route: 065
  2. WOMENS ROGAINE [Suspect]
     Active Substance: MINOXIDIL
     Indication: ALOPECIA
     Dosage: DOSED BY USING THE PROVIDED DROPPER
     Route: 061
     Dates: start: 20150417, end: 201504
  3. WOMENS ROGAINE [Suspect]
     Active Substance: MINOXIDIL
     Route: 061

REACTIONS (2)
  - Skin exfoliation [Recovering/Resolving]
  - Dry skin [Recovering/Resolving]
